FAERS Safety Report 9471708 (Version 2)
Quarter: 2013Q3

REPORT INFORMATION
  Report Type: Spontaneous
  Country: JP (occurrence: None)
  Receive Date: 20130819
  Receipt Date: 20130918
  Transmission Date: 20140515
  Serious: Yes (Other)
  Sender: FDA-Public Use
  Company Number: 2013P1018488

PATIENT
  Sex: Female

DRUGS (5)
  1. ZANTAC [Suspect]
     Indication: PROPHYLAXIS
     Route: 042
     Dates: start: 200811, end: 200907
  2. DECADRON (DEXAMETHASONE) [Concomitant]
  3. KYTRIL [Concomitant]
  4. TAXOL (PACLITAXEL) [Concomitant]
  5. PARAPLATIN (CARBOPLATIN) [Concomitant]

REACTIONS (8)
  - Abdominal pain upper [None]
  - Laryngeal oedema [None]
  - Dysphonia [None]
  - Face oedema [None]
  - Blood pressure decreased [None]
  - Respiratory depression [None]
  - Shock [None]
  - Exposure during pregnancy [None]
